FAERS Safety Report 18837129 (Version 1)
Quarter: 2021Q1

REPORT INFORMATION
  Report Type: Spontaneous
  Country: US (occurrence: US)
  Receive Date: 20210203
  Receipt Date: 20210203
  Transmission Date: 20210419
  Serious: No
  Sender: FDA-Public Use
  Company Number: US-ALLERGAN-2023955US

PATIENT
  Sex: Female

DRUGS (2)
  1. BOTOX COSMETIC [Suspect]
     Active Substance: ONABOTULINUMTOXINA
     Indication: MUSCLE HYPERTROPHY
     Dosage: 80 UNITS, SINGLE
     Dates: start: 20200602, end: 20200602
  2. BOTOX COSMETIC [Suspect]
     Active Substance: ONABOTULINUMTOXINA
     Dosage: 40 UNITS, SINGLE

REACTIONS (6)
  - Facial discomfort [Not Recovered/Not Resolved]
  - Facial paresis [Not Recovered/Not Resolved]
  - Incorrect dose administered [Unknown]
  - Aphasia [Not Recovered/Not Resolved]
  - Facial paralysis [Not Recovered/Not Resolved]
  - Off label use [Unknown]
